FAERS Safety Report 4692750-7 (Version None)
Quarter: 2005Q2

REPORT INFORMATION
  Report Type: 
  Country: None (occurrence: None)
  Receive Date: 20050617
  Receipt Date: 20050609
  Transmission Date: 20051028
  Serious: Yes (Life-Threatening)
  Sender: FDA-Public Use
  Company Number: FR-GLAXOSMITHKLINE-B0384100A

PATIENT
  Age: 48 Year
  Sex: Female

DRUGS (2)
  1. AUGMENTIN '125' [Suspect]
     Indication: ILL-DEFINED DISORDER
     Dosage: 2G SINGLE DOSE
     Route: 042
     Dates: start: 20040929, end: 20040929
  2. PROPOFOL [Suspect]
     Dosage: 1UNIT SINGLE DOSE
     Route: 042
     Dates: start: 20040929, end: 20040929

REACTIONS (4)
  - ANAPHYLACTIC SHOCK [None]
  - HYPOTENSION [None]
  - RASH [None]
  - SINUS TACHYCARDIA [None]
